FAERS Safety Report 6856905-5 (Version None)
Quarter: 2010Q3

REPORT INFORMATION
  Report Type: 
  Country: None (occurrence: None)
  Receive Date: 20100719
  Receipt Date: 20100705
  Transmission Date: 20110219
  Serious: Yes (Other)
  Sender: FDA-Public Use
  Company Number: PHHY2010JP43002

PATIENT
  Sex: Female

DRUGS (24)
  1. TASIGNA [Suspect]
     Indication: CHRONIC MYELOID LEUKAEMIA
     Dosage: 200 MG, DAILY
     Route: 048
     Dates: start: 20091005, end: 20091206
  2. TASIGNA [Suspect]
     Dosage: 100 MG, DAILY
     Route: 048
     Dates: start: 20100105, end: 20100208
  3. TASIGNA [Suspect]
     Dosage: 800 MG, DAILY
     Route: 048
     Dates: start: 20100209
  4. DIOVAN [Concomitant]
     Dosage: 80 MG, UNK
     Route: 048
     Dates: start: 20091117
  5. TAKEPRON [Concomitant]
     Indication: PROPHYLAXIS
     Dosage: 30 MG, UNK
     Route: 048
     Dates: start: 20090813
  6. LAC B [Concomitant]
     Indication: PROPHYLAXIS
     Dosage: 3 G, UNK
     Route: 048
     Dates: start: 20090813
  7. MUCOSTA [Concomitant]
     Indication: PROPHYLAXIS
     Dosage: 300 MG, UNK
     Route: 048
     Dates: start: 20090825
  8. LOPERAMIDE HYDROCHLORIDE [Concomitant]
     Dosage: 2 MG, UNK
     Route: 048
     Dates: start: 20091105, end: 20091123
  9. CODEINE PHOSPHATE [Concomitant]
     Dosage: 0.3 G, UNK
     Route: 048
     Dates: start: 20091105, end: 20091123
  10. ANTEBATE [Concomitant]
     Dosage: UNK
     Dates: start: 20091110
  11. KENALOG [Concomitant]
     Dosage: UNK
     Dates: start: 20091111
  12. HYALEIN [Concomitant]
     Dosage: UNK
     Route: 047
     Dates: start: 20091124
  13. NORVASC [Concomitant]
     Dosage: 2.5 MG, UNK
     Route: 048
     Dates: start: 20091222
  14. GEBEN [Concomitant]
     Dosage: UNK
     Dates: start: 20091222
  15. SANTESON [Concomitant]
     Dosage: UNK
     Dates: start: 20100105
  16. LASIX [Concomitant]
     Dosage: 20 MG, UNK
     Route: 048
     Dates: start: 20100105
  17. THROMBIN LOCAL SOLUTION [Concomitant]
     Indication: PROPHYLAXIS
     Dosage: 40000 IU, UNK
     Route: 048
     Dates: start: 20090813, end: 20090902
  18. ALLOID [Concomitant]
     Indication: PROPHYLAXIS
     Dosage: 160 ML, UNK
     Route: 048
     Dates: start: 20090813, end: 20090916
  19. LOPERAMIDE HYDROCHLORIDE [Concomitant]
     Dosage: 2 MG, UNK
     Route: 048
     Dates: start: 20091012, end: 20091117
  20. ZYLORIC [Concomitant]
     Dosage: 200 MG, UNK
     Route: 048
     Dates: start: 20100210
  21. SOLDEM 3A [Concomitant]
     Dosage: 500 ML, UNK
     Route: 041
  22. SOLDEM 1 [Concomitant]
     Dosage: 500 ML, UNK
     Route: 041
     Dates: start: 20100210
  23. MEYLON [Concomitant]
     Dosage: 20 ML, UNK
     Route: 041
     Dates: start: 20100210
  24. SPRYCEL [Concomitant]
     Indication: CHRONIC MYELOID LEUKAEMIA
     Dosage: 100 MG, DAILY
     Dates: start: 20090630, end: 20090720

REACTIONS (3)
  - BLAST CRISIS IN MYELOGENOUS LEUKAEMIA [None]
  - LIPASE INCREASED [None]
  - PLATELET COUNT DECREASED [None]
